FAERS Safety Report 5168302-1 (Version None)
Quarter: 2006Q4

REPORT INFORMATION
  Report Type: 
  Country: None (occurrence: None)
  Receive Date: 20061208
  Receipt Date: 20060301
  Transmission Date: 20070319
  Serious: Yes (Death, Hospitalization)
  Sender: FDA-Public Use
  Company Number: US-ROCHE-438849

PATIENT
  Age: 18 Year
  Sex: Male
  Weight: 60.8 kg

DRUGS (1)
  1. ACCUTANE [Suspect]
     Indication: ACNE
     Route: 048
     Dates: start: 19950911, end: 19960215

REACTIONS (71)
  - ABDOMINAL ABSCESS [None]
  - ABDOMINAL WALL ABSCESS [None]
  - ABSCESS [None]
  - ANAL FISTULA [None]
  - ARTERIOSCLEROSIS [None]
  - ARTHRALGIA [None]
  - ATELECTASIS [None]
  - BACK PAIN [None]
  - BRADYCARDIA [None]
  - CANDIDIASIS [None]
  - CARDIAC ARREST [None]
  - CARDIAC FAILURE CONGESTIVE [None]
  - CHEST PAIN [None]
  - CHORIORETINOPATHY [None]
  - COLITIS [None]
  - CONJUNCTIVITIS [None]
  - COUGH [None]
  - CROHN'S DISEASE [None]
  - DEHYDRATION [None]
  - DEPRESSION [None]
  - DERMATITIS CONTACT [None]
  - DRUG SCREEN POSITIVE [None]
  - DYSPHAGIA [None]
  - DYSPNOEA EXERTIONAL [None]
  - ECZEMA [None]
  - FATIGUE [None]
  - FISTULA [None]
  - FLANK PAIN [None]
  - GASTROENTERITIS BACTERIAL [None]
  - GASTROENTERITIS VIRAL [None]
  - GASTROINTESTINAL HAEMORRHAGE [None]
  - GASTROINTESTINAL STOMA COMPLICATION [None]
  - GASTROOESOPHAGEAL REFLUX DISEASE [None]
  - HEADACHE [None]
  - HEAT EXHAUSTION [None]
  - HYPONATRAEMIA [None]
  - HYPOTENSION [None]
  - HYPOVOLAEMIA [None]
  - ILEUS [None]
  - INFLAMMATORY BOWEL DISEASE [None]
  - IRON DEFICIENCY ANAEMIA [None]
  - KERATITIS [None]
  - LIVER ABSCESS [None]
  - LOSS OF CONSCIOUSNESS [None]
  - LOWER GASTROINTESTINAL HAEMORRHAGE [None]
  - LYMPHADENOPATHY [None]
  - MACULAR OEDEMA [None]
  - MALAISE [None]
  - MICROCYTIC ANAEMIA [None]
  - NECK INJURY [None]
  - PACEMAKER COMPLICATION [None]
  - PAIN [None]
  - PAIN IN EXTREMITY [None]
  - PANCREATITIS [None]
  - PLEURAL EFFUSION [None]
  - PNEUMONIA [None]
  - POSTOPERATIVE ABSCESS [None]
  - PROSTATIC DISORDER [None]
  - PRURITUS [None]
  - PYREXIA [None]
  - RASH [None]
  - RECTAL FISSURE [None]
  - RENAL FAILURE [None]
  - SEBORRHOEIC DERMATITIS [None]
  - SEPSIS [None]
  - SINUS TACHYCARDIA [None]
  - SLEEP DISORDER [None]
  - SUBCUTANEOUS ABSCESS [None]
  - SUICIDAL IDEATION [None]
  - SUPRAVENTRICULAR TACHYCARDIA [None]
  - VIRAL INFECTION [None]
